FAERS Safety Report 6907508-5 (Version None)
Quarter: 2010Q3

REPORT INFORMATION
  Report Type: 
  Country: None (occurrence: None)
  Receive Date: 20100805
  Receipt Date: 20100726
  Transmission Date: 20110219
  Serious: No
  Sender: FDA-Public Use
  Company Number: US-BIOGENIDEC-2010BI025882

PATIENT
  Sex: Female

DRUGS (2)
  1. TYSABRI [Suspect]
     Indication: MULTIPLE SCLEROSIS
     Route: 042
     Dates: start: 20071001, end: 20090910
  2. TYSABRI [Suspect]
     Route: 042
     Dates: start: 20100702

REACTIONS (3)
  - BALANCE DISORDER [None]
  - HEADACHE [None]
  - HYPOAESTHESIA [None]
